FAERS Safety Report 7150030-4 (Version None)
Quarter: 2010Q4

REPORT INFORMATION
  Report Type: 
  Country: None (occurrence: None)
  Receive Date: 20101210
  Receipt Date: 20101119
  Transmission Date: 20110411
  Serious: No
  Sender: FDA-Public Use
  Company Number: US-PFIZER INC-2010155952

PATIENT
  Age: 63 Year
  Sex: Male
  Weight: 110.2 kg

DRUGS (2)
  1. ADVIL CONGESTION RELIEF [Suspect]
     Indication: SINUS CONGESTION
     Dosage: 1 DF, 1X/DAY
     Route: 048
     Dates: start: 20101112, end: 20101118
  2. ALLEGRA [Concomitant]

REACTIONS (1)
  - DRUG INEFFECTIVE [None]
